FAERS Safety Report 10502647 (Version 1)
Quarter: 2014Q4

REPORT INFORMATION
  Report Type: Spontaneous
  Country: US (occurrence: US)
  Receive Date: 20141007
  Receipt Date: 20141007
  Transmission Date: 20150528
  Serious: No
  Sender: FDA-Public Use
  Company Number: US-ELI_LILLY_AND_COMPANY-US201409005538

PATIENT
  Sex: Female

DRUGS (5)
  1. LASIX                                   /SCH/ [Concomitant]
     Dosage: 80 MG, QD
  2. ASPIRIN. [Concomitant]
     Active Substance: ASPIRIN
     Dosage: 81 MG, UNK
  3. LANTUS [Concomitant]
     Active Substance: INSULIN GLARGINE
  4. EFFIENT [Suspect]
     Active Substance: PRASUGREL HYDROCHLORIDE
     Indication: STENT PLACEMENT
     Dosage: 10 MG, QD
     Route: 065
  5. CLOPIXOL [Concomitant]
     Active Substance: ZUCLOPENTHIXOL ACETATE

REACTIONS (2)
  - Rash [Unknown]
  - Medication error [Unknown]
